FAERS Safety Report 7639697-1 (Version None)
Quarter: 2011Q3

REPORT INFORMATION
  Report Type: 
  Country: None (occurrence: None)
  Receive Date: 20110727
  Receipt Date: 20110713
  Transmission Date: 20111222
  Serious: Yes (Hospitalization)
  Sender: FDA-Public Use
  Company Number: JP-WATSON-2011-08802

PATIENT
  Sex: Male

DRUGS (8)
  1. MIYA BM [Concomitant]
     Indication: CONSTIPATION
     Dosage: UNK
     Route: 048
     Dates: start: 20110301
  2. RASILEZ                            /01763601/ [Concomitant]
     Indication: HYPERTENSION
     Dosage: 150 MG DAILY
     Route: 048
     Dates: start: 20110311, end: 20110322
  3. LANSOPRAZOLE [Concomitant]
     Indication: GASTROOESOPHAGEAL REFLUX DISEASE
     Dosage: 15 MG DAILY
     Route: 048
     Dates: start: 20110324
  4. MAGMITT [Concomitant]
     Indication: CONSTIPATION
     Dosage: 1500 MG DAILY
     Route: 048
     Dates: start: 20110301
  5. RAPAFLO [Suspect]
     Indication: POLLAKIURIA
     Dosage: 4 MG, BID
     Route: 048
     Dates: start: 20110527, end: 20110606
  6. RAPAFLO [Suspect]
     Indication: BENIGN PROSTATIC HYPERPLASIA
     Dosage: 4 MG, DAILY
     Route: 048
     Dates: start: 20110324, end: 20110526
  7. TRICHLORMETHIAZIDE [Concomitant]
     Indication: HYPERTENSION
     Dosage: 1 MG DAILY
     Route: 048
     Dates: start: 20110323
  8. SITAGLIPTIN PHOSPHATE [Concomitant]
     Indication: DIABETES MELLITUS
     Dosage: 50 MG DAILY
     Route: 048
     Dates: start: 20110311

REACTIONS (7)
  - RASH GENERALISED [None]
  - RASH [None]
  - HEPATIC FUNCTION ABNORMAL [None]
  - SPINAL FRACTURE [None]
  - ECZEMA ASTEATOTIC [None]
  - OEDEMA PERIPHERAL [None]
  - PRURITUS [None]
